FAERS Safety Report 7122449-9 (Version None)
Quarter: 2010Q4

REPORT INFORMATION
  Report Type: 
  Country: None (occurrence: None)
  Receive Date: 20101124
  Receipt Date: 20101122
  Transmission Date: 20110411
  Serious: Yes (Hospitalization, Other)
  Sender: FDA-Public Use
  Company Number: US-MERCK-1010USA02735

PATIENT
  Age: 50 Year
  Sex: Male
  Weight: 93 kg

DRUGS (24)
  1. JANUVIA [Suspect]
     Indication: DIABETES MELLITUS
     Route: 048
     Dates: start: 20091029
  2. NOVOLOG [Concomitant]
     Route: 065
  3. ASPIRIN [Concomitant]
     Indication: CARDIAC DISORDER
     Route: 048
  4. CEPHALEXIN [Concomitant]
     Route: 048
  5. DOCUSATE SODIUM [Concomitant]
     Route: 048
  6. DOCUSATE SODIUM [Concomitant]
     Indication: CONSTIPATION
     Route: 048
  7. OXYCODONE HCL AND ACETAMINOPHEN [Concomitant]
     Dosage: 1-2 TABLETS Q3-4H AS NEEDED
     Route: 048
  8. FAMOTIDINE [Concomitant]
     Indication: DYSPEPSIA
     Route: 048
  9. FOLIC ACID [Concomitant]
     Route: 048
  10. FUROSEMIDE [Concomitant]
     Indication: HYPERTENSION
     Route: 048
  11. GABAPENTIN [Concomitant]
     Route: 048
  12. LANTUS [Concomitant]
     Indication: DIABETES MELLITUS
     Route: 051
  13. LISINOPRIL [Concomitant]
     Indication: HYPERTENSION
     Route: 048
  14. LORATADINE [Concomitant]
     Dosage: ENTIRE SEASON EVEN IF FEELING BETTER
     Route: 048
  15. METFORMIN [Concomitant]
     Indication: DIABETES MELLITUS
     Route: 048
  16. METOPROLOL [Concomitant]
     Indication: DIABETES MELLITUS
     Route: 048
  17. MAGNESIA [MILK OF] [Concomitant]
     Route: 048
  18. MS CONTIN [Concomitant]
     Route: 048
  19. NICOTINELL [Concomitant]
     Route: 065
  20. NORCO [Concomitant]
     Route: 048
  21. POTASSIUM (UNSPECIFIED) [Concomitant]
     Dosage: 20 MEQ
     Route: 048
  22. VITAMINS (UNSPECIFIED) [Concomitant]
     Route: 048
  23. SIMVASTATIN [Concomitant]
     Indication: BLOOD CHOLESTEROL INCREASED
     Route: 048
  24. TERBINAFINE [Concomitant]
     Route: 048

REACTIONS (3)
  - ANAEMIA [None]
  - CARDIAC FAILURE CONGESTIVE [None]
  - MYOCARDIAL INFARCTION [None]
